FAERS Safety Report 9415189 (Version 2)
Quarter: 2014Q1

REPORT INFORMATION
  Report Type: Not Available
  Country: FR (occurrence: FR)
  Receive Date: 20130723
  Receipt Date: 20140129
  Transmission Date: 20141002
  Serious: Yes (Hospitalization)
  Sender: FDA-Public Use
  Company Number: FR-NAPPMUNDI-GBR-2013-0015021

PATIENT
  Age: 84 Year
  Sex: Female

DRUGS (13)
  1. OXYNORMORO COMPRIME ORODISPERSIBLE 10MG [Suspect]
     Indication: PAIN
     Dosage: UNK
     Route: 048
     Dates: end: 201304
  2. IXPRIM [Suspect]
     Indication: PAIN
     Dosage: UNK UNK, TID
     Route: 048
     Dates: end: 20130411
  3. KARDEGIC [Concomitant]
     Dosage: 75 MG, UNK
  4. LASILIX                            /00032601/ [Concomitant]
     Dosage: 40 MG, UNK
  5. ONBREZ [Concomitant]
     Dosage: 150 MCG, UNK
  6. PARIET [Concomitant]
     Dosage: 20 MG, UNK
  7. PAROXETINE [Concomitant]
  8. PLAVIX [Concomitant]
     Dosage: 75 MG, UNK
  9. RISPERDAL [Concomitant]
  10. SERESTA [Concomitant]
     Dosage: 10 MG, UNK
  11. TRANSIPEG                          /00754501/ [Concomitant]
     Dosage: 5.9 G, UNK
  12. ATACAND [Concomitant]
     Dosage: 8 MG, UNK
  13. IMOVANE [Concomitant]
     Dosage: 3.75 MG, UNK

REACTIONS (3)
  - Fall [Recovered/Resolved]
  - Cognitive disorder [Not Recovered/Not Resolved]
  - Confusional state [Not Recovered/Not Resolved]
